FAERS Safety Report 22183022 (Version 2)
Quarter: 2023Q2

REPORT INFORMATION
  Report Type: Spontaneous
  Country: US (occurrence: US)
  Receive Date: 20230406
  Receipt Date: 20230425
  Transmission Date: 20230722
  Serious: No
  Sender: FDA-Public Use
  Company Number: US-ALLERGAN-2303015US

PATIENT
  Sex: Female

DRUGS (1)
  1. QULIPTA [Suspect]
     Active Substance: ATOGEPANT
     Indication: Product used for unknown indication
     Dates: start: 20221228

REACTIONS (8)
  - Lyme disease [Unknown]
  - Infection [Unknown]
  - Fungal infection [Unknown]
  - Pain [Unknown]
  - Gastrointestinal disorder [Unknown]
  - Palpitations [Unknown]
  - Constipation [Unknown]
  - Migraine [Recovering/Resolving]
